FAERS Safety Report 10006181 (Version 1)
Quarter: 2014Q1

REPORT INFORMATION
  Report Type: Spontaneous
  Country: US (occurrence: US)
  Receive Date: 20140313
  Receipt Date: 20140313
  Transmission Date: 20141002
  Serious: Yes (Other)
  Sender: FDA-Public Use
  Company Number: US-ROCHE-1362882

PATIENT
  Age: 4 Year
  Sex: Female

DRUGS (1)
  1. VALIUM [Suspect]
     Indication: EPILEPSY
     Route: 065

REACTIONS (5)
  - Convulsion [Unknown]
  - Hepatic failure [Unknown]
  - Stevens-Johnson syndrome [Unknown]
  - Anaemia [Unknown]
  - Drug ineffective [Unknown]
